FAERS Safety Report 17346575 (Version 1)
Quarter: 2020Q1

REPORT INFORMATION
  Report Type: Report from Study
  Country: US (occurrence: US)
  Receive Date: 20200129
  Receipt Date: 20200129
  Transmission Date: 20200409
  Serious: No
  Sender: FDA-Public Use
  Company Number: US-EXELIXIS-CABO-19023099

PATIENT
  Age: 66 Year
  Sex: Male

DRUGS (1)
  1. CABOMETYX [Suspect]
     Active Substance: CABOZANTINIB S-MALATE
     Indication: PRODUCT USED FOR UNKNOWN INDICATION
     Dosage: 40 MG, QD
     Route: 048
     Dates: start: 20190717, end: 20190904

REACTIONS (9)
  - Blood pressure increased [Not Recovered/Not Resolved]
  - Hepatic enzyme increased [Unknown]
  - Constipation [Unknown]
  - Headache [Unknown]
  - Gait disturbance [Unknown]
  - Wound [Unknown]
  - Hyperkeratosis [Unknown]
  - Dizziness [Unknown]
  - Flatulence [Unknown]

NARRATIVE: CASE EVENT DATE: 20190901
